FAERS Safety Report 9778315 (Version 1)
Quarter: 2013Q4

REPORT INFORMATION
  Report Type: Spontaneous
  Country: US (occurrence: None)
  Receive Date: 20131220
  Receipt Date: 20131220
  Transmission Date: 20140711
  Serious: Yes (Other)
  Sender: FDA-Public Use
  Company Number: None

PATIENT
  Age: 82 Year
  Sex: Female
  Weight: 58.97 kg

DRUGS (12)
  1. LEVOFLOXACIN [Suspect]
     Indication: SINUSITIS
     Dosage: 500 MG/ DISPENSED 10 ONLY 3 TAB. TAKEN DAILY MOUTH (FOLLOWING FOOD)
     Route: 048
     Dates: start: 20131203, end: 20131205
  2. THYROID [Concomitant]
  3. ASA [Concomitant]
  4. BYSTOLIC [Concomitant]
  5. VALTARIM [Concomitant]
  6. PREMARIN [Concomitant]
  7. FOLIC ACID [Concomitant]
  8. SYMBICANT [Concomitant]
  9. PROENTIL [Concomitant]
  10. VID W/CALCIUM [Concomitant]
  11. VIT C [Concomitant]
  12. B12 [Concomitant]

REACTIONS (1)
  - Myalgia [None]
